FAERS Safety Report 9146397 (Version 1)
Quarter: 2013Q1

REPORT INFORMATION
  Report Type: Spontaneous
  Country: SG (occurrence: SG)
  Receive Date: 20130307
  Receipt Date: 20130307
  Transmission Date: 20140127
  Serious: Yes (Other)
  Sender: FDA-Public Use
  Company Number: SG-PFIZER INC-2013077588

PATIENT
  Sex: 0

DRUGS (3)
  1. PIPERACILLIN/TAZOBACTAM [Suspect]
     Dosage: UNK
     Route: 065
  2. PIPERACILLIN SODIUM [Suspect]
     Dosage: UNK
     Route: 065
  3. ROCEPHIN [Suspect]
     Dosage: UNK
     Route: 065

REACTIONS (2)
  - Eyelid oedema [Unknown]
  - Lip swelling [Unknown]
